FAERS Safety Report 6168614-9 (Version None)
Quarter: 2009Q2

REPORT INFORMATION
  Report Type: 
  Country: None (occurrence: None)
  Receive Date: 20090427
  Receipt Date: 20090417
  Transmission Date: 20091009
  Serious: Yes (Life-Threatening, Other)
  Sender: FDA-Public Use
  Company Number: US-ABBOTT-08P-163-0485467-00

PATIENT
  Age: 29 Year
  Sex: Female

DRUGS (5)
  1. ADALIMUMAB [Suspect]
     Indication: RHEUMATOID ARTHRITIS
     Dosage: NOT REPORTED
  2. ADALIMUMAB [Suspect]
  3. ADALIMUMAB [Suspect]
  4. ADALIMUMAB [Suspect]
     Dosage: NOT REPORTED
  5. METHOTREXATE [Concomitant]
     Indication: DRUG USE FOR UNKNOWN INDICATION
     Dosage: NOT REPORTED

REACTIONS (2)
  - PARADOXICAL DRUG REACTION [None]
  - TUBERCULOSIS [None]
